FAERS Safety Report 11574999 (Version 1)
Quarter: 2015Q3

REPORT INFORMATION
  Report Type: Spontaneous
  Country: US (occurrence: US)
  Receive Date: 20150930
  Receipt Date: 20150930
  Transmission Date: 20151125
  Serious: Yes (Other)
  Sender: FDA-Public Use
  Company Number: US-TARO PHARMACEUTICALS USA.,INC-2015SUN02022

PATIENT
  Age: 75 Year
  Sex: Male

DRUGS (2)
  1. ENALAPRIL MALEATE TABLETS USP, 5 MG [Suspect]
     Active Substance: ENALAPRIL MALEATE
     Indication: GLOMERULONEPHRITIS MINIMAL LESION
     Dosage: 5 MG, DAILY
     Route: 065
  2. PREDNISONE. [Concomitant]
     Active Substance: PREDNISONE
     Indication: GLOMERULONEPHRITIS MINIMAL LESION

REACTIONS (2)
  - Anaemia [Recovered/Resolved]
  - Haemorrhoidal haemorrhage [None]
